FAERS Safety Report 6727969-4 (Version None)
Quarter: 2010Q2

REPORT INFORMATION
  Report Type: 
  Country: None (occurrence: None)
  Receive Date: 20100517
  Receipt Date: 20100510
  Transmission Date: 20101027
  Serious: Yes (Hospitalization, Other)
  Sender: FDA-Public Use
  Company Number: US-SANOFI-AVENTIS-2010SA026700

PATIENT
  Age: 65 Year
  Sex: Female

DRUGS (16)
  1. NASACORT AQ [Suspect]
     Indication: ASTHMA
     Dosage: 1 SPRAY IN EACH NOSTRIL
     Route: 045
     Dates: start: 20100505, end: 20100506
  2. NASACORT AQ [Interacting]
     Indication: RHINITIS
     Dosage: 1 SPRAY IN EACH NOSTRIL
     Route: 045
     Dates: start: 20100505, end: 20100506
  3. NASACORT AQ [Interacting]
     Dosage: 1 SPRAY IN EACH NOSTRIL
     Route: 045
     Dates: start: 20100508
  4. NASACORT AQ [Interacting]
     Dosage: 1 SPRAY IN EACH NOSTRIL
     Route: 045
     Dates: start: 20100508
  5. ALBUTEROL [Interacting]
     Route: 055
  6. XOPENEX [Interacting]
     Route: 055
  7. ALL OTHER THERAPEUTIC PRODUCTS [Concomitant]
  8. CRESTOR [Concomitant]
  9. TOPROL-XL [Concomitant]
     Dosage: DOSE:12.5 UNIT(S)
  10. OTHER HORMONES [Concomitant]
     Dates: start: 19960101
  11. INSULIN [Concomitant]
  12. LISINOPRIL [Concomitant]
  13. ASPIRIN [Concomitant]
  14. VALIUM [Concomitant]
  15. AZMACORT [Concomitant]
     Dates: end: 20100505
  16. NASONEX [Concomitant]
     Dates: end: 20100505

REACTIONS (16)
  - BLINDNESS [None]
  - CHEST DISCOMFORT [None]
  - CHEST PAIN [None]
  - DRUG INTERACTION [None]
  - DYSPHONIA [None]
  - DYSPNOEA [None]
  - HEADACHE [None]
  - HYPERSENSITIVITY [None]
  - INTRAOCULAR PRESSURE INCREASED [None]
  - LARYNGOSPASM [None]
  - LOSS OF CONSCIOUSNESS [None]
  - MENTAL IMPAIRMENT [None]
  - NAUSEA [None]
  - PALATAL OEDEMA [None]
  - PHARYNGITIS [None]
  - THROAT TIGHTNESS [None]
